FAERS Safety Report 8990938 (Version 1)
Quarter: 2012Q4

REPORT INFORMATION
  Report Type: Spontaneous
  Country: CN (occurrence: None)
  Receive Date: 20121221
  Receipt Date: 20121221
  Transmission Date: 20130627
  Serious: Yes (Death)
  Sender: FDA-Public Use
  Company Number: CN-ACCORD-015640

PATIENT
  Sex: Female

DRUGS (8)
  1. ETOPOSIDE [Suspect]
     Indication: GESTATIONAL TROPHOBLASTIC TUMOUR
     Dosage: 100.00-mg/m2-21.0/ Intravenous drip
                       Days
     Route: 041
  2. CISPLATIN [Suspect]
     Indication: GESTATIONAL TROPHOBLASTIC TUMOUR
     Dosage: 20.00-mg/m2-/ Intravenous drip
     Route: 041
  3. BLEOMYCIN [Suspect]
     Indication: GESTATIONAL TROPHOBLASTIC TUMOUR
     Dosage: 15.00-Mg-21.0Days  / Intraveous (not otherwise specified)
     Route: 042
  4. VINCRISTINE SULFATE [Suspect]
     Indication: GESTATIONAL TROPHOBLASTIC TUMOUR
  5. FLOUROURACIL [Suspect]
     Indication: GESTATIONAL TROPHOBLASTIC TUMOUR
  6. CYCLOPHOSPHAMIDE [Suspect]
     Indication: GESTATIONAL TROPHOBLASTIC TUMOUR
  7. METHOTREXATE [Suspect]
     Indication: GESTATIONAL TROPHOBLASTIC TUMOUR
  8. DACTINOMYCIN [Suspect]
     Indication: GESTATIONAL TROPHOBLASTIC TUMOUR

REACTIONS (5)
  - Drug resistance [None]
  - Drug ineffective [None]
  - Metastases to central nervous system [None]
  - Off label use [None]
  - Drug administration error [None]
